FAERS Safety Report 4918619-8 (Version None)
Quarter: 2006Q1

REPORT INFORMATION
  Report Type: 
  Country: None (occurrence: None)
  Receive Date: 20060221
  Receipt Date: 20060221
  Transmission Date: 20060701
  Serious: No
  Sender: FDA-Public Use
  Company Number: None

PATIENT
  Sex: Female
  Weight: 80.7403 kg

DRUGS (1)
  1. PACLITAXEL [Suspect]
     Indication: BREAST CANCER
     Dosage: 340MG  MONTHLY  IV DRIP
     Route: 041
     Dates: start: 20050503, end: 20060201

REACTIONS (7)
  - ABDOMINAL PAIN [None]
  - BACK PAIN [None]
  - FEELING ABNORMAL [None]
  - NAUSEA [None]
  - SENSORY DISTURBANCE [None]
  - SHOULDER PAIN [None]
  - THROAT IRRITATION [None]
